FAERS Safety Report 6316133-9 (Version None)
Quarter: 2009Q3

REPORT INFORMATION
  Report Type: 
  Country: None (occurrence: None)
  Receive Date: 20090820
  Receipt Date: 20090813
  Transmission Date: 20100115
  Serious: Yes (Other)
  Sender: FDA-Public Use
  Company Number: CN-ASTRAZENECA-2009SE07910

PATIENT
  Age: 35 Year
  Sex: Female
  Weight: 86 kg

DRUGS (6)
  1. DIPRIVAN [Suspect]
     Indication: ANAESTHESIA
     Route: 042
     Dates: start: 20041011, end: 20041011
  2. DIPRIVAN [Suspect]
     Dosage: 20 ML/HR TO MAINTANCE ANESTHESIA
     Route: 042
     Dates: start: 20041011, end: 20041011
  3. DIPRIVAN [Suspect]
     Dosage: 10-15 ML/HR
     Route: 042
     Dates: start: 20041011, end: 20041011
  4. MIDAZOLAM HCL [Concomitant]
     Indication: ANAESTHESIA
     Route: 042
     Dates: start: 20041011, end: 20041011
  5. VECURONIUM BROMIDE [Concomitant]
     Indication: ANAESTHESIA
     Route: 042
     Dates: start: 20041011, end: 20041011
  6. FENTANYL [Concomitant]
     Indication: ANAESTHESIA
     Route: 042
     Dates: start: 20041011, end: 20041011

REACTIONS (1)
  - ANAPHYLACTIC SHOCK [None]
